FAERS Safety Report 11381508 (Version 2)
Quarter: 2015Q4

REPORT INFORMATION
  Report Type: Spontaneous
  Country: US (occurrence: US)
  Receive Date: 20150814
  Receipt Date: 20151009
  Transmission Date: 20160304
  Serious: Yes (Other)
  Sender: FDA-Public Use
  Company Number: US-ASTRAZENECA-2015SE76899

PATIENT
  Sex: Female

DRUGS (1)
  1. SYMBICORT [Suspect]
     Active Substance: BUDESONIDE\FORMOTEROL FUMARATE DIHYDRATE
     Dosage: 160 UG, 160/4.5MCG, 2 PUFFS TWICE A DAY
     Route: 055

REACTIONS (3)
  - Cerebrovascular accident [Unknown]
  - Intentional device misuse [Unknown]
  - Device issue [Unknown]
